FAERS Safety Report 21341015 (Version 2)
Quarter: 2022Q4

REPORT INFORMATION
  Report Type: Report from Study
  Country: BR (occurrence: BR)
  Receive Date: 20220916
  Receipt Date: 20221007
  Transmission Date: 20230113
  Serious: Yes (Other)
  Sender: FDA-Public Use
  Company Number: BR-JNJFOC-20220924279

PATIENT
  Age: 51 Year
  Sex: Female
  Weight: 78 kg

DRUGS (5)
  1. REMICADE [Suspect]
     Active Substance: INFLIXIMAB
     Indication: Psoriatic arthropathy
     Dosage: 3,9 VIALS
     Route: 041
     Dates: start: 20220829
  2. FLUOXETINE HYDROCHLORIDE [Concomitant]
     Active Substance: FLUOXETINE HYDROCHLORIDE
  3. PREGABALIN [Concomitant]
     Active Substance: PREGABALIN
  4. METHOTREXATE [Concomitant]
     Active Substance: METHOTREXATE
     Dosage: 6 CP OF 1.5 - 3 IN THE MORNING AND 3 IN THE AFTERNOON
  5. FOLIC ACID;VITAMINS NOS [Concomitant]
     Dosage: MORNING 1CP

REACTIONS (3)
  - Psoriatic arthropathy [Unknown]
  - Infusion related reaction [Unknown]
  - Somnolence [Recovered/Resolved]
